FAERS Safety Report 14275658 (Version 1)
Quarter: 2017Q4

REPORT INFORMATION
  Report Type: Not Available
  Country: None (occurrence: US)
  Receive Date: 20171212
  Receipt Date: 20171212
  Transmission Date: 20180321
  Serious: No
  Sender: FDA-Public Use
  Company Number: US-AKORN-70678

PATIENT

DRUGS (1)
  1. ZIOPTAN [Suspect]
     Active Substance: TAFLUPROST

REACTIONS (4)
  - Eyelid irritation [Unknown]
  - Eyelids pruritus [Unknown]
  - Erythema of eyelid [Unknown]
  - Eyelid skin dryness [Unknown]
